FAERS Safety Report 24780739 (Version 1)
Quarter: 2024Q4

REPORT INFORMATION
  Report Type: Other
  Country: CA (occurrence: CA)
  Receive Date: 20241227
  Receipt Date: 20241227
  Transmission Date: 20250115
  Serious: Yes (Hospitalization)
  Sender: APOTEX
  Company Number: CA-APOTEX-2024AP019951

PATIENT
  Age: 45 Year
  Sex: Female

DRUGS (6)
  1. ARIPIPRAZOLE [Suspect]
     Active Substance: ARIPIPRAZOLE
     Indication: Major depression
     Dosage: 5 MILLIGRAM, QD
     Route: 065
  2. ARIPIPRAZOLE [Suspect]
     Active Substance: ARIPIPRAZOLE
     Dosage: 15 MILLIGRAM, QD
     Route: 048
  3. CLONAZEPAM [Suspect]
     Active Substance: CLONAZEPAM
     Indication: Major depression
     Dosage: 0.75 MILLIGRAM, QD
     Route: 065
  4. DULOXETINE [Suspect]
     Active Substance: DULOXETINE
     Indication: Major depression
     Dosage: 120 MILLIGRAM, QD
     Route: 048
  5. MODAFINIL [Suspect]
     Active Substance: MODAFINIL
     Indication: Major depression
     Dosage: 100 MILLIGRAM, QD
     Route: 065
  6. TEMAZEPAM [Suspect]
     Active Substance: TEMAZEPAM
     Indication: Major depression
     Dosage: 15 MILLIGRAM, QD
     Route: 065

REACTIONS (1)
  - Depression [Unknown]
